FAERS Safety Report 9910701 (Version 3)
Quarter: 2015Q3

REPORT INFORMATION
  Report Type: Spontaneous
  Country: US (occurrence: US)
  Receive Date: 20140219
  Receipt Date: 20150811
  Transmission Date: 20151125
  Serious: No
  Sender: FDA-Public Use
  Company Number: US-GILEAD-2012-0052062

PATIENT
  Age: 54 Year
  Sex: Female

DRUGS (9)
  1. LETAIRIS [Suspect]
     Active Substance: AMBRISENTAN
     Indication: CARDIAC VALVE DISEASE
  2. KCL [Concomitant]
     Active Substance: POTASSIUM CHLORIDE
  3. NEXIUM [Concomitant]
     Active Substance: ESOMEPRAZOLE MAGNESIUM
  4. DILTIAZEM [Concomitant]
     Active Substance: DILTIAZEM
  5. LETAIRIS [Suspect]
     Active Substance: AMBRISENTAN
     Indication: PULMONARY HYPERTENSION
     Dosage: 5 MG, UNK
     Route: 048
     Dates: start: 20120307, end: 20120326
  6. WARFARIN [Concomitant]
     Active Substance: WARFARIN
  7. BISOPROLOL [Concomitant]
     Active Substance: BISOPROLOL
  8. SPIRONOLACTONE. [Concomitant]
     Active Substance: SPIRONOLACTONE
  9. FOLIC ACID. [Concomitant]
     Active Substance: FOLIC ACID

REACTIONS (8)
  - Chest discomfort [Unknown]
  - Flushing [Unknown]
  - Epistaxis [Unknown]
  - Rash [Unknown]
  - Dyspnoea [Unknown]
  - Cough [Unknown]
  - Feeling abnormal [Unknown]
  - Peripheral swelling [Unknown]

NARRATIVE: CASE EVENT DATE: 20120309
